FAERS Safety Report 5694730-1 (Version None)
Quarter: 2008Q2

REPORT INFORMATION
  Report Type: 
  Country: None (occurrence: None)
  Receive Date: 20080404
  Receipt Date: 20080401
  Transmission Date: 20081010
  Serious: Yes (Death, Life-Threatening)
  Sender: FDA-Public Use
  Company Number: DE-GENENTECH-258592

PATIENT
  Sex: Male

DRUGS (2)
  1. ACTIVASE [Suspect]
     Indication: CEREBROVASCULAR ACCIDENT
     Dosage: 9 MG, SINGLE
     Route: 040
     Dates: start: 20080301
  2. ACTIVASE [Suspect]
     Indication: CEREBRAL INFARCTION
     Dosage: 81 MG, UNK
     Route: 042

REACTIONS (2)
  - RESPIRATORY FAILURE [None]
  - TONGUE OEDEMA [None]
